FAERS Safety Report 7769681-9 (Version None)
Quarter: 2011Q3

REPORT INFORMATION
  Report Type: 
  Country: None (occurrence: None)
  Receive Date: 20110922
  Receipt Date: 20100825
  Transmission Date: 20111222
  Serious: No
  Sender: FDA-Public Use
  Company Number: US-ASTRAZENECA-2007UW14362

PATIENT
  Age: 61 Year
  Sex: Female
  Weight: 81.6 kg

DRUGS (30)
  1. SEROQUEL [Suspect]
     Indication: DEPRESSION
     Dosage: 50 MG TO 200 MG
     Route: 048
     Dates: start: 20060221, end: 20060606
  2. LORAZEPAM [Concomitant]
     Route: 048
     Dates: start: 20040127
  3. LEVOTHYROXINE SODIUM [Concomitant]
     Route: 048
     Dates: start: 20050107
  4. ESOMEPRAZOLE SODIUM [Concomitant]
     Route: 048
     Dates: start: 20060606
  5. BUSPIRONE HCL [Concomitant]
     Dosage: 5 MG, 3 TABLET DAILY
     Route: 048
     Dates: start: 20060607
  6. ACETAMINOPHEN [Concomitant]
     Indication: PAIN
     Route: 048
     Dates: start: 20060707
  7. SEROQUEL [Suspect]
     Indication: SLEEP DISORDER
     Dosage: 50 MG TO 200 MG
     Route: 048
     Dates: start: 20060221, end: 20060606
  8. LORAZEPAM [Concomitant]
     Dates: start: 20060101
  9. ROBAXIN [Concomitant]
     Route: 048
     Dates: start: 20050211
  10. CYMBALTA [Concomitant]
     Route: 048
     Dates: start: 20060606
  11. ATENOLOL [Concomitant]
     Route: 048
     Dates: start: 20040102
  12. FUROSEMIDE [Concomitant]
     Route: 048
     Dates: start: 20050125
  13. DILTIAZEM [Concomitant]
     Route: 048
     Dates: start: 20050707
  14. TYLENOL-500 [Concomitant]
     Indication: PAIN
     Route: 048
     Dates: start: 20060606
  15. DOCUSATE [Concomitant]
     Route: 048
     Dates: start: 20060606
  16. TRAZODONE HYDROCHLORIDE [Concomitant]
     Dates: start: 20060101
  17. SEROQUEL [Suspect]
     Dosage: 200 MG TO 300 MG
     Route: 048
     Dates: start: 20060222, end: 20060630
  18. NEXIUM [Concomitant]
     Route: 048
     Dates: start: 20040126
  19. PROMETHAZINE [Concomitant]
     Route: 048
     Dates: start: 20050211
  20. NEURONTIN [Concomitant]
     Route: 048
     Dates: start: 20060221
  21. TRAZODONE HYDROCHLORIDE [Concomitant]
     Indication: SLEEP DISORDER
     Route: 048
     Dates: start: 20060607
  22. SEROQUEL [Suspect]
     Dosage: 200 MG TO 300 MG
     Route: 048
     Dates: start: 20060222, end: 20060630
  23. LISINOPRIL [Concomitant]
     Route: 048
     Dates: start: 20040312
  24. COREG [Concomitant]
     Dosage: 25 MG, 2 TABLET DAILY
     Route: 048
     Dates: start: 20060606
  25. CARDIZEM [Concomitant]
     Route: 048
     Dates: start: 20060221
  26. FOLIC ACID [Concomitant]
     Route: 048
     Dates: start: 20060221
  27. POTASSIUM [Concomitant]
     Route: 048
     Dates: start: 20060606
  28. CYMBALTA [Concomitant]
     Dates: start: 20060101
  29. BUSPIRONE HCL [Concomitant]
     Dates: start: 20060101
  30. ATARAX [Concomitant]
     Route: 048
     Dates: start: 20060609

REACTIONS (8)
  - TYPE 2 DIABETES MELLITUS [None]
  - MUSCULOSKELETAL PAIN [None]
  - HYPERTENSION [None]
  - CORONARY ARTERY DISEASE [None]
  - CARDIAC DISORDER [None]
  - CARDIAC FAILURE CONGESTIVE [None]
  - ROTATOR CUFF SYNDROME [None]
  - HYPERGLYCAEMIA [None]
